FAERS Safety Report 4326334-7 (Version None)
Quarter: 2004Q1

REPORT INFORMATION
  Report Type: 
  Country: None (occurrence: None)
  Receive Date: 20040323
  Receipt Date: 20040309
  Transmission Date: 20041129
  Serious: Yes (Hospitalization, Other)
  Sender: FDA-Public Use
  Company Number: US-JNJFOC-20040101016

PATIENT
  Age: 74 Year
  Sex: Female
  Weight: 51.9369 kg

DRUGS (16)
  1. REMICADE [Suspect]
     Indication: RHEUMATOID ARTHRITIS
     Dosage: 300 MG, 1 IN 8 WEEK, INTRAVENOUS; 400 MG 1 IN 6 WEEK, INTRAVENOUS
     Route: 042
     Dates: start: 20000101, end: 20020101
  2. REMICADE [Suspect]
     Indication: RHEUMATOID ARTHRITIS
     Dosage: 300 MG, 1 IN 8 WEEK, INTRAVENOUS; 400 MG 1 IN 6 WEEK, INTRAVENOUS
     Route: 042
     Dates: start: 20020101, end: 20020201
  3. CELEBREX [Concomitant]
  4. FOLIC ACID [Concomitant]
  5. METHOTREXATE [Concomitant]
  6. PREDNISONE [Concomitant]
  7. MEDROXYPROGESTERONE [Concomitant]
  8. ESTRADIOL [Concomitant]
  9. OSCAL (CALCIUM CARBONATE) [Concomitant]
  10. GERITOL (GERITOL) [Concomitant]
  11. FOSAMAX [Concomitant]
  12. LOSEC (OMEPRAZOLE) [Concomitant]
  13. PROTONIX [Concomitant]
  14. PROMETHAZINE [Concomitant]
  15. METOCLOPRAMIDE [Concomitant]
  16. ZOLOFT [Concomitant]

REACTIONS (35)
  - AMNESIA [None]
  - ARTHRALGIA [None]
  - ASTHENIA [None]
  - AUTOIMMUNE DISORDER [None]
  - BLOOD CALCIUM DECREASED [None]
  - BURSITIS [None]
  - CHRONIC OBSTRUCTIVE AIRWAYS DISEASE [None]
  - CONTUSION [None]
  - DEPRESSION [None]
  - DERMAL CYST [None]
  - DYSPHAGIA [None]
  - ENCEPHALITIS [None]
  - ENCEPHALOPATHY [None]
  - FALL [None]
  - GASTROOESOPHAGEAL REFLUX DISEASE [None]
  - HYPONATRAEMIA [None]
  - IMMUNOSUPPRESSION [None]
  - LOSS OF CONSCIOUSNESS [None]
  - LUMBAR PUNCTURE ABNORMAL [None]
  - MENINGITIS TUBERCULOUS [None]
  - OEDEMA PERIPHERAL [None]
  - OESOPHAGEAL CANDIDIASIS [None]
  - PEPTIC ULCER [None]
  - PNEUMONIA [None]
  - PNEUMONITIS [None]
  - PYREXIA [None]
  - RENAL FAILURE [None]
  - RESPIRATORY FAILURE [None]
  - RHEUMATOID ARTHRITIS [None]
  - ROAD TRAFFIC ACCIDENT [None]
  - SICCA SYNDROME [None]
  - SYNCOPE [None]
  - TREATMENT NONCOMPLIANCE [None]
  - TREMOR [None]
  - VOMITING [None]
